FAERS Safety Report 8162518-8 (Version None)
Quarter: 2012Q1

REPORT INFORMATION
  Report Type: 
  Country: None (occurrence: None)
  Receive Date: 20120224
  Receipt Date: 20110429
  Transmission Date: 20120608
  Serious: Yes (Other)
  Sender: FDA-Public Use
  Company Number: US-PFIZER INC-K201100475

PATIENT
  Sex: Female

DRUGS (6)
  1. ZOCOR [Concomitant]
     Dosage: UNK
  2. SPIRIVA [Concomitant]
     Dosage: UNK
  3. ALBUTEROL [Concomitant]
     Dosage: UNK
  4. ALTACE [Suspect]
     Dosage: 10 MG, UNK
     Route: 048
     Dates: end: 20110401
  5. ADVAIR DISKUS 100/50 [Concomitant]
     Dosage: UNK
  6. ANAGRELIDE [Concomitant]
     Dosage: UNK

REACTIONS (8)
  - HYPERHIDROSIS [None]
  - THROAT TIGHTNESS [None]
  - ABDOMINAL PAIN [None]
  - LIP SWELLING [None]
  - FEELING HOT [None]
  - HYPERSENSITIVITY [None]
  - DIARRHOEA [None]
  - COLITIS [None]
